FAERS Safety Report 8284801-8 (Version None)
Quarter: 2012Q2

REPORT INFORMATION
  Report Type: 
  Country: None (occurrence: None)
  Receive Date: 20120413
  Receipt Date: 20110708
  Transmission Date: 20120825
  Serious: No
  Sender: FDA-Public Use
  Company Number: US-ASTRAZENECA-2010SE52686

PATIENT
  Age: 46 Year
  Sex: Male

DRUGS (2)
  1. NEXIUM [Suspect]
     Route: 048
  2. NEXIUM [Suspect]
     Route: 048

REACTIONS (9)
  - BACK PAIN [None]
  - APHAGIA [None]
  - DRUG DOSE OMISSION [None]
  - BACK DISORDER [None]
  - GASTROOESOPHAGEAL REFLUX DISEASE [None]
  - INTERVERTEBRAL DISC PROTRUSION [None]
  - DYSPHAGIA [None]
  - DRUG INEFFECTIVE [None]
  - VOMITING [None]
